FAERS Safety Report 17200847 (Version 1)
Quarter: 2020Q1

REPORT INFORMATION
  Report Type: Spontaneous
  Country: US (occurrence: US)
  Receive Date: 20191224
  Receipt Date: 20191224
  Transmission Date: 20200409
  Serious: Yes (Disabling)
  Sender: FDA-Public Use
  Company Number: None

PATIENT
  Sex: Female
  Weight: 81.65 kg

DRUGS (3)
  1. SKYLA [Suspect]
     Active Substance: LEVONORGESTREL
  2. ESCITALOPRAM 15MG [Concomitant]
  3. WELLBUTRIN [Concomitant]
     Active Substance: BUPROPION HYDROCHLORIDE

REACTIONS (9)
  - Pyrexia [None]
  - Uterine cervical pain [None]
  - Vulvovaginal pain [None]
  - Dyspareunia [None]
  - Muscle spasms [None]
  - Uterine haemorrhage [None]
  - Device dislocation [None]
  - Presyncope [None]
  - Pain [None]
